FAERS Safety Report 7384501-2 (Version None)
Quarter: 2011Q1

REPORT INFORMATION
  Report Type: 
  Country: None (occurrence: None)
  Receive Date: 20110330
  Receipt Date: 20110324
  Transmission Date: 20110831
  Serious: Yes (Hospitalization, Other)
  Sender: FDA-Public Use
  Company Number: FR-PFIZER INC-2011066395

PATIENT
  Age: 78 Year
  Sex: Male

DRUGS (2)
  1. ATORVASTATIN CALCIUM [Suspect]
     Dosage: UNK
  2. ISOPTIN SR [Interacting]
     Dosage: UNK
     Dates: start: 20110201

REACTIONS (2)
  - DRUG INTERACTION [None]
  - CARDIAC FAILURE [None]
